FAERS Safety Report 6674708-1 (Version None)
Quarter: 2010Q2

REPORT INFORMATION
  Report Type: 
  Country: None (occurrence: None)
  Receive Date: 20100409
  Receipt Date: 20100330
  Transmission Date: 20101027
  Serious: Yes (Hospitalization)
  Sender: FDA-Public Use
  Company Number: FR-PFIZER INC-2010040213

PATIENT
  Age: 43 Year
  Sex: Male

DRUGS (6)
  1. TAHOR [Suspect]
     Dosage: 10 MG, UNK
     Route: 048
     Dates: start: 20100227
  2. BI-PROFENID [Suspect]
     Dosage: 150 MG, 2X/DAY
     Route: 048
     Dates: start: 20100224, end: 20100305
  3. TETRAZEPAM [Suspect]
     Dosage: 50 MG, 2X/DAY
     Route: 048
     Dates: start: 20100224, end: 20100305
  4. DAFALGAN [Suspect]
     Dosage: UNK
     Route: 048
     Dates: start: 20100224, end: 20100305
  5. PARIET [Suspect]
     Dosage: UNK
     Route: 048
     Dates: start: 20100303, end: 20100305
  6. IXPRIM [Suspect]
     Dosage: UNK
     Route: 048
     Dates: start: 20100303, end: 20100305

REACTIONS (1)
  - REVERSIBLE POSTERIOR LEUKOENCEPHALOPATHY SYNDROME [None]
